FAERS Safety Report 7026503-1 (Version None)
Quarter: 2010Q4

REPORT INFORMATION
  Report Type: 
  Country: None (occurrence: None)
  Receive Date: 20101004
  Receipt Date: 20100901
  Transmission Date: 20110411
  Serious: No
  Sender: FDA-Public Use
  Company Number: US-PFIZER INC-2010111056

PATIENT
  Sex: Male

DRUGS (20)
  1. TRIAZOLAM [Suspect]
     Indication: SLEEP DISORDER
     Dosage: 0.125 MG, UNK
     Dates: start: 20100704, end: 20100704
  2. TESTOSTERONE [Suspect]
     Indication: BLOOD TESTOSTERONE DECREASED
     Dosage: 50 MG, DAILY
     Route: 062
     Dates: start: 20100601, end: 20100721
  3. TESTOSTERONE [Suspect]
     Dosage: 300 MG, UNK
  4. TESTOSTERONE [Suspect]
     Dosage: 50 MG, UNK
  5. TESTOSTERONE [Suspect]
     Dosage: 100 MG, DAILY
     Route: 062
     Dates: start: 20100722
  6. ARMOUR THYROID [Suspect]
     Indication: TRI-IODOTHYRONINE DECREASED
     Dosage: UNK
     Dates: start: 20100717
  7. OXYCONTIN [Suspect]
     Indication: BONE PAIN
     Dosage: 240 MG, 3X/DAY
     Dates: start: 20050101
  8. SOY ISOFLAVONES [Suspect]
     Dosage: UNK
  9. T4 [Concomitant]
     Indication: THYROID DISORDER
     Dosage: UNK
     Dates: end: 20100716
  10. HYDROCHLOROTHIAZIDE [Concomitant]
     Indication: BLOOD PRESSURE
     Dosage: UNK
     Dates: start: 20100101
  11. LISINOPRIL [Concomitant]
     Indication: BLOOD PRESSURE
     Dosage: UNK
     Dates: start: 20100101
  12. SOMA [Concomitant]
     Indication: MUSCLE SPASMS
     Dosage: UNK
     Dates: start: 20050101
  13. GABAPENTIN [Concomitant]
     Indication: BONE PAIN
     Dosage: UNK
     Dates: start: 20050101
  14. DILTIAZEM [Concomitant]
     Indication: BLOOD PRESSURE
     Dosage: UNK
     Dates: start: 20100101
  15. OMEPRAZOLE [Concomitant]
     Indication: ABDOMINAL DISCOMFORT
     Dosage: UNK
  16. CALCIUM [Concomitant]
     Dosage: UNK
  17. MAGNESIUM [Concomitant]
     Dosage: UNK
  18. FISH OIL [Concomitant]
     Dosage: UNK
  19. METOPROLOL [Concomitant]
     Indication: BLOOD PRESSURE
     Dosage: UNK
     Dates: start: 20100101
  20. ESTAZOLAM [Concomitant]
     Indication: SLEEP DISORDER
     Dosage: 2 MG, AS REQUIRED

REACTIONS (1)
  - MALAISE [None]
